FAERS Safety Report 9836670 (Version 1)
Quarter: 2013Q4

REPORT INFORMATION
  Report Type: Spontaneous
  Country: US (occurrence: None)
  Receive Date: 20131120
  Receipt Date: 20131120
  Transmission Date: 20140711
  Serious: No
  Sender: FDA-Public Use
  Company Number: 1000049359

PATIENT
  Age: 42 Year
  Sex: Female

DRUGS (4)
  1. VIIBRYD (VILAZODONE HYROCHLORIDE) (TABLETS) [Suspect]
     Indication: DEPRESSION
     Dates: start: 201308, end: 2013
  2. VIIBRYD (VILAZODONE HYROCHLORIDE) (TABLETS) [Suspect]
     Indication: ANXIETY
     Dates: start: 201308, end: 2013
  3. VIIBRYD (VILAZODONE HYDROCHLORIDE) (TABLETS) [Suspect]
     Indication: DEPRESSION
     Dates: start: 2013, end: 2013
  4. VIIBRYD (VILAZODONE HYDROCHLORIDE) (TABLETS) [Suspect]
     Indication: ANXIETY
     Dates: start: 2013, end: 2013

REACTIONS (2)
  - Vomiting [None]
  - Headache [None]
